FAERS Safety Report 14561213 (Version 3)
Quarter: 2018Q2

REPORT INFORMATION
  Report Type: Spontaneous
  Country: US (occurrence: US)
  Receive Date: 20180222
  Receipt Date: 20180618
  Transmission Date: 20180711
  Serious: No
  Sender: FDA-Public Use
  Company Number: US-JNJFOC-20180211445

PATIENT
  Age: 56 Year
  Sex: Female
  Weight: 158.31 kg

DRUGS (8)
  1. CLOZAPINE. [Concomitant]
     Active Substance: CLOZAPINE
     Route: 065
  2. LUBIPROSTONE [Concomitant]
     Active Substance: LUBIPROSTONE
     Route: 065
  3. NADOLOL. [Concomitant]
     Active Substance: NADOLOL
     Route: 065
  4. SIMPONI [Suspect]
     Active Substance: GOLIMUMAB
     Indication: RHEUMATOID ARTHRITIS
     Route: 058
     Dates: start: 201309
  5. CELECOXIB. [Concomitant]
     Active Substance: CELECOXIB
     Route: 065
  6. FLUDROCORTISONE [Concomitant]
     Active Substance: FLUDROCORTISONE
     Route: 065
  7. MYRBETRIC [Concomitant]
     Route: 065
  8. MIDODRINE [Concomitant]
     Active Substance: MIDODRINE
     Route: 065

REACTIONS (3)
  - Lower limb fracture [Unknown]
  - Skin abrasion [Unknown]
  - Fall [Unknown]

NARRATIVE: CASE EVENT DATE: 201803
